FAERS Safety Report 24697554 (Version 1)
Quarter: 2024Q4

REPORT INFORMATION
  Report Type: Spontaneous
  Country: US (occurrence: US)
  Receive Date: 20241204
  Receipt Date: 20241204
  Transmission Date: 20250115
  Serious: Yes (Other)
  Sender: PFIZER
  Company Number: US-PFIZER INC-PV202400155591

PATIENT
  Age: 7 Decade
  Sex: Female
  Weight: 96.1 kg

DRUGS (4)
  1. PHYTONADIONE [Suspect]
     Active Substance: PHYTONADIONE
     Indication: International normalised ratio increased
     Dosage: 5 MG IN 50 ML NORMAL SALINE SOLUTION
     Route: 042
  2. PHYTONADIONE [Suspect]
     Active Substance: PHYTONADIONE
     Dosage: 1.25 MG
     Route: 048
  3. PHYTONADIONE [Suspect]
     Active Substance: PHYTONADIONE
     Dosage: 5 MG
     Route: 048
  4. SODIUM CHLORIDE [Concomitant]
     Active Substance: SODIUM CHLORIDE
     Indication: Vehicle solution use
     Dosage: 50 ML

REACTIONS (2)
  - Infusion related reaction [Recovered/Resolved]
  - Off label use [Unknown]
